FAERS Safety Report 6526945-4 (Version None)
Quarter: 2009Q4

REPORT INFORMATION
  Report Type: 
  Country: None (occurrence: None)
  Receive Date: 20091229
  Receipt Date: 20091215
  Transmission Date: 20100525
  Serious: Yes (Hospitalization)
  Sender: FDA-Public Use
  Company Number: 003397

PATIENT
  Age: 69 Year
  Sex: Male

DRUGS (2)
  1. PREDNISOLONE [Suspect]
  2. CYCLOSPORINE [Suspect]

REACTIONS (7)
  - DIPLOPIA [None]
  - INTERSTITIAL LUNG DISEASE [None]
  - MICROSCOPIC POLYANGIITIS [None]
  - MONONEUROPATHY MULTIPLEX [None]
  - NEUTROPHIL COUNT INCREASED [None]
  - PLEURAL EFFUSION [None]
  - VITH NERVE PARALYSIS [None]
